FAERS Safety Report 11459553 (Version 1)
Quarter: 2015Q3

REPORT INFORMATION
  Report Type: Spontaneous
  Country: US (occurrence: US)
  Receive Date: 20150904
  Receipt Date: 20150904
  Transmission Date: 20151125
  Serious: No
  Sender: FDA-Public Use
  Company Number: US-TARO-2015TAR00255

PATIENT
  Sex: Female
  Weight: 97.51 kg

DRUGS (6)
  1. WARFARIN SODIUM TABLETS USP 3MG [Suspect]
     Active Substance: WARFARIN SODIUM
     Dosage: 4.5 MG, 1X/DAY, FOR 2 DAYS OF THE WEEK
     Route: 048
     Dates: start: 2011, end: 201204
  2. WARFARIN SODIUM TABLETS USP 3MG [Suspect]
     Active Substance: WARFARIN SODIUM
     Indication: ATRIAL FIBRILLATION
     Dosage: 3 MG, 1X/DAY, FOR 5 DAYS OF WEEK
     Route: 048
     Dates: start: 2011, end: 201204
  3. POTASSIUM [Concomitant]
     Active Substance: POTASSIUM
  4. LIPITOR [Concomitant]
     Active Substance: ATORVASTATIN CALCIUM
  5. ATENOLOL. [Concomitant]
     Active Substance: ATENOLOL
     Indication: HYPERTENSION
  6. CARDIZEM [Concomitant]
     Active Substance: DILTIAZEM HYDROCHLORIDE

REACTIONS (2)
  - Product substitution issue [Recovered/Resolved]
  - Alopecia [Recovered/Resolved]
